FAERS Safety Report 5498879-8 (Version None)
Quarter: 2007Q4

REPORT INFORMATION
  Report Type: 
  Country: None (occurrence: None)
  Receive Date: 20071026
  Receipt Date: 20071004
  Transmission Date: 20080405
  Serious: No
  Sender: FDA-Public Use
  Company Number: A0667363A

PATIENT
  Age: 48 Year
  Sex: Male

DRUGS (3)
  1. ADVAIR DISKUS 100/50 [Suspect]
     Indication: ASTHMA
     Dosage: 1PUFF TWICE PER DAY
     Route: 055
     Dates: start: 20050901
  2. ALBUTEROL [Concomitant]
  3. ALLEGRA [Concomitant]

REACTIONS (3)
  - DRUG INEFFECTIVE [None]
  - DYSPNOEA [None]
  - PHARMACEUTICAL PRODUCT COMPLAINT [None]
